FAERS Safety Report 9847505 (Version 2)
Quarter: 2014Q1

REPORT INFORMATION
  Report Type: Spontaneous
  Country: DE (occurrence: DE)
  Receive Date: 20140127
  Receipt Date: 20140203
  Transmission Date: 20141002
  Serious: Yes (Other)
  Sender: FDA-Public Use
  Company Number: DE-JNJFOC-20140112875

PATIENT
  Age: 53 Year
  Sex: Female

DRUGS (1)
  1. DOLORMIN MIGRANE ZAPFCHEN [Suspect]
     Indication: HEADACHE
     Route: 048

REACTIONS (3)
  - Diarrhoea haemorrhagic [Unknown]
  - Abdominal pain upper [Unknown]
  - Burning sensation [Unknown]
